FAERS Safety Report 8682351 (Version 2)
Quarter: 2012Q4

REPORT INFORMATION
  Report Type: 
  Country: US (occurrence: US)
  Receive Date: 20120725
  Receipt Date: 20120917
  Transmission Date: 20130627
  Serious: Yes (Hospitalization)
  Sender: FDA-Public Use
  Company Number: US-ASTRAZENECA-2012SE48273

PATIENT
  Age: 63 Year
  Sex: Female

DRUGS (3)
  1. PULMICORT RESPULES [Suspect]
     Route: 055
  2. SYMBICORT PMDI [Suspect]
     Route: 055
  3. ADVAIR [Concomitant]

REACTIONS (2)
  - Malaise [Unknown]
  - Pharyngitis [Unknown]
